FAERS Safety Report 25095934 (Version 1)
Quarter: 2025Q1

REPORT INFORMATION
  Report Type: Spontaneous
  Country: US (occurrence: US)
  Receive Date: 20250319
  Receipt Date: 20250319
  Transmission Date: 20250408
  Serious: Yes (Life-Threatening, Hospitalization, Other)
  Sender: PFIZER
  Company Number: US-PFIZER INC-202500058281

PATIENT

DRUGS (9)
  1. AZITHROMYCIN [Suspect]
     Active Substance: AZITHROMYCIN
     Dosage: 500 MG, DAILY
     Route: 048
     Dates: start: 20250219
  2. CEFTRIAXONE [Suspect]
     Active Substance: CEFTRIAXONE
     Indication: Evidence based treatment
     Route: 042
     Dates: start: 20250218
  3. CEFTRIAXONE [Suspect]
     Active Substance: CEFTRIAXONE
     Route: 042
     Dates: start: 20250219
  4. CEFEPIME [Suspect]
     Active Substance: CEFEPIME HYDROCHLORIDE
     Route: 042
     Dates: start: 20250219
  5. GUAIFENESIN [Suspect]
     Active Substance: GUAIFENESIN
     Route: 048
     Dates: start: 20250219
  6. GUAIFENESIN [Suspect]
     Active Substance: GUAIFENESIN
     Route: 048
     Dates: start: 20250224
  7. ASCIMINIB [Concomitant]
     Active Substance: ASCIMINIB
     Dates: end: 20250218
  8. ASCIMINIB [Concomitant]
     Active Substance: ASCIMINIB
     Dates: start: 20250304
  9. CEFAZOLIN [Concomitant]
     Active Substance: CEFAZOLIN
     Dosage: 2 G, 3X/DAY
     Route: 042
     Dates: start: 20250221

REACTIONS (27)
  - Pneumonia [Unknown]
  - Encephalopathy [Unknown]
  - Shock [Unknown]
  - Bacteraemia [Unknown]
  - Flatulence [Unknown]
  - Acute respiratory failure [Unknown]
  - Rheumatoid arthritis [Unknown]
  - Staphylococcal sepsis [Recovered/Resolved]
  - Respiratory failure [Recovered/Resolved]
  - Acute kidney injury [Unknown]
  - Sepsis [Unknown]
  - Klebsiella urinary tract infection [Recovered/Resolved]
  - Tachycardia [Unknown]
  - Norepinephrine increased [Unknown]
  - Oedema peripheral [Unknown]
  - Muscle spasms [Recovered/Resolved]
  - Pain [Not Recovered/Not Resolved]
  - Neck pain [Not Recovered/Not Resolved]
  - Neuralgia [Unknown]
  - Muscular weakness [Unknown]
  - Muscle spasticity [Unknown]
  - Blood sodium decreased [Unknown]
  - Blood creatinine increased [Unknown]
  - Polyuria [Unknown]
  - Arthralgia [Not Recovered/Not Resolved]
  - Peripheral swelling [Unknown]
  - Pain in extremity [Unknown]

NARRATIVE: CASE EVENT DATE: 20250220
